FAERS Safety Report 14563150 (Version 2)
Quarter: 2018Q2

REPORT INFORMATION
  Report Type: Spontaneous
  Country: SE (occurrence: SE)
  Receive Date: 20180222
  Receipt Date: 20180402
  Transmission Date: 20180711
  Serious: Yes (Other)
  Sender: FDA-Public Use
  Company Number: SE-TEVA-2018-SE-858787

PATIENT
  Age: 24 Year
  Sex: Female

DRUGS (1)
  1. CLINDAMYCIN ACTAVIS [Suspect]
     Active Substance: CLINDAMYCIN
     Indication: INFLAMMATION
     Route: 065
     Dates: end: 20171115

REACTIONS (1)
  - Clostridium difficile infection [Unknown]

NARRATIVE: CASE EVENT DATE: 20171122
